FAERS Safety Report 11371237 (Version 1)
Quarter: 2015Q3

REPORT INFORMATION
  Report Type: Spontaneous
  Country: BE (occurrence: BE)
  Receive Date: 20150812
  Receipt Date: 20150812
  Transmission Date: 20151125
  Serious: Yes (Hospitalization, Other)
  Sender: FDA-Public Use
  Company Number: BE-TEVA-584594ISR

PATIENT
  Age: 34 Year
  Sex: Female

DRUGS (6)
  1. CHARCOAL [Suspect]
     Active Substance: ACTIVATED CHARCOAL
     Route: 065
  2. VENLAFAXINE [Suspect]
     Active Substance: VENLAFAXINE HYDROCHLORIDE
     Route: 048
  3. LITHIUM. [Suspect]
     Active Substance: LITHIUM
     Route: 048
  4. QUETIAPINE [Suspect]
     Active Substance: QUETIAPINE
     Route: 048
  5. IBUPROFEN. [Suspect]
     Active Substance: IBUPROFEN
     Route: 048
  6. LOPERAMIDE [Suspect]
     Active Substance: LOPERAMIDE
     Route: 048

REACTIONS (7)
  - Acute respiratory distress syndrome [Recovering/Resolving]
  - Aggression [Unknown]
  - Mydriasis [Unknown]
  - Toxicity to various agents [Unknown]
  - Agitation [Unknown]
  - Mental disorder [Unknown]
  - Confusional state [Unknown]
